FAERS Safety Report 9478109 (Version 1)
Quarter: 2013Q3

REPORT INFORMATION
  Report Type: Spontaneous
  Country: TN (occurrence: TN)
  Receive Date: 20130827
  Receipt Date: 20130827
  Transmission Date: 20140515
  Serious: Yes (Life-Threatening, Hospitalization, Disabling)
  Sender: FDA-Public Use
  Company Number: TN-BAYER-2013-102592

PATIENT
  Age: 31 Year
  Sex: Female
  Weight: 70 kg

DRUGS (1)
  1. JASMINE [Suspect]
     Dosage: UNK
     Dates: start: 201007

REACTIONS (5)
  - Cerebral haemorrhage [None]
  - Epilepsy [Recovered/Resolved with Sequelae]
  - Speech disorder [Recovered/Resolved with Sequelae]
  - Coma [Recovered/Resolved]
  - Thrombosis [None]
